FAERS Safety Report 8111345-6 (Version None)
Quarter: 2012Q1

REPORT INFORMATION
  Report Type: 
  Country: None (occurrence: None)
  Receive Date: 20120202
  Receipt Date: 20120202
  Transmission Date: 20120608
  Serious: Yes (Life-Threatening, Hospitalization, Other)
  Sender: FDA-Public Use
  Company Number: None

PATIENT
  Age: 60 Year
  Sex: Female
  Weight: 106.5953 kg

DRUGS (2)
  1. MEDROL [Suspect]
     Indication: BRONCHITIS
     Dosage: PAK AS DIRECTED DAILY 4X
     Dates: start: 20120112
  2. MEDROL [Suspect]
     Indication: BRONCHITIS
     Dosage: PAK AS DIRECTED DAILY 4X
     Dates: start: 20120113

REACTIONS (4)
  - HEADACHE [None]
  - SPEECH DISORDER [None]
  - DRUG HYPERSENSITIVITY [None]
  - HYPOAESTHESIA EYE [None]
